FAERS Safety Report 14241396 (Version 4)
Quarter: 2018Q1

REPORT INFORMATION
  Report Type: Report from Study
  Country: None (occurrence: CH)
  Receive Date: 20171130
  Receipt Date: 20180109
  Transmission Date: 20180508
  Serious: Yes (Hospitalization, Other)
  Sender: FDA-Public Use
  Company Number: CH-ABBVIE-17K-151-2179941-00

PATIENT
  Sex: Female

DRUGS (3)
  1. OCTENISEPT [Concomitant]
     Active Substance: OCTENIDINE\PHENOXYETHANOL
     Indication: PRODUCT USED FOR UNKNOWN INDICATION
  2. DUODOPA [Suspect]
     Active Substance: CARBIDOPA\LEVODOPA
     Indication: PARKINSON^S DISEASE
     Dosage: MORNING DOSE: 10ML?CONTINUOUS DOSE: 4.8ML/H?EXTRA DOSE: 2ML
     Route: 050
     Dates: start: 20170104, end: 20170323
  3. DUODOPA [Suspect]
     Active Substance: CARBIDOPA\LEVODOPA
     Dosage: MORNING DOSE: 10ML?CONTINUOUS DOSE: 4.8ML/H?EXTRA DOSE: 3ML
     Route: 050
     Dates: start: 20170323

REACTIONS (8)
  - Pain in extremity [Not Recovered/Not Resolved]
  - Device dislocation [Unknown]
  - Pelvic fracture [Unknown]
  - Stoma site odour [Unknown]
  - Fall [Unknown]
  - Stoma site erythema [Unknown]
  - Device issue [Recovered/Resolved]
  - Stoma site discharge [Unknown]

NARRATIVE: CASE EVENT DATE: 2017
